FAERS Safety Report 13463359 (Version 1)
Quarter: 2017Q2

REPORT INFORMATION
  Report Type: Spontaneous
  Country: US (occurrence: US)
  Receive Date: 20170420
  Receipt Date: 20170420
  Transmission Date: 20170830
  Serious: No
  Sender: FDA-Public Use
  Company Number: US-GREER LABORATORIES, INC.-1065604

PATIENT
  Age: 47 Year
  Sex: Female

DRUGS (16)
  1. ALLERGENIC EXTRACT- MITE, DERMATOPHAGOIDES FARINAE [Suspect]
     Active Substance: DERMATOPHAGOIDES FARINAE
     Indication: RHINITIS ALLERGIC
     Route: 058
     Dates: start: 20170313
  2. STANDARDIZED SHORT RAGWEED POLLEN [Suspect]
     Active Substance: AMBROSIA ARTEMISIIFOLIA POLLEN
     Route: 058
     Dates: start: 20170313
  3. POLLENS - WEEDS AND GARDEN PLANTS, MARSHELDER, TRUE/ROUGH, IVA ANNUA [Suspect]
     Active Substance: IVA ANNUA POLLEN
     Route: 058
     Dates: start: 20170313
  4. ANIMAL ALLERGENS, AP DOG HAIR AND DANDER CANIS SPP [Suspect]
     Active Substance: CANIS LUPUS FAMILIARIS DANDER\CANIS LUPUS FAMILIARIS HAIR
     Route: 058
     Dates: start: 20170313
  5. ALBUTEROL HFA [Concomitant]
     Active Substance: ALBUTEROL SULFATE
     Route: 048
  6. STANDARDIZED MITE, DERMATOPHAGOIDES PTERONYSSINUS [Suspect]
     Active Substance: DERMATOPHAGOIDES PTERONYSSINUS
     Route: 058
     Dates: start: 20170313
  7. IBUPROFEN. [Concomitant]
     Active Substance: IBUPROFEN
     Route: 048
  8. MOLDS, RUSTS AND SMUTS, GS NEW STOCK FUNGI MIX [Suspect]
     Active Substance: ALTERNARIA ALTERN\ASPERGILLUS NIGER V\AUREOBASIDIUM PULLULANS VAR. P\BOTRYTIS CINE\CANDIDA ALB\CHAETOMIUM GLOB\CLADOSPORIUM SPHAEROSPERM\COCHLIOBOLUS SATIV\EPICOCCUM NIG\GIBBERELLA FUJIK\MUCOR PLUMB\PENICILLIUM CHRYSOGENUM VAR. CHRYS\PLEOSPORA BETAE\RHIZOPUS STOL\SAROCLADIUM STRIC\TRICHOPHYTON MENTA
     Route: 058
     Dates: start: 20170313
  9. MOLDS, RUSTS AND SMUTS, GS MOLD MIX #1 [Suspect]
     Active Substance: ALTERNARIA ALTERNATA\ ASPERGILLUS NIGER VAR. NIGER\COCHLIOBOLUS SATIVUS\CLADOSPORIUM SPHAEROSPERMUM\PENICILLIUM CHRYSOGENUM VAR. CHRYSOGENUM
     Route: 058
     Dates: start: 20170313
  10. MONTELUKAST [Concomitant]
     Active Substance: MONTELUKAST SODIUM
     Route: 048
  11. STERILE DILUENT FOR ALLERGENIC EXTRACT (ALBUMIN (HUMAN)\PHENOL) [Suspect]
     Active Substance: ALBUMIN HUMAN\PHENOL
     Route: 058
     Dates: start: 20170313
  12. AMITRIPTYLINE HYDROCHLORIDE. [Concomitant]
     Active Substance: AMITRIPTYLINE HYDROCHLORIDE
     Route: 048
  13. TRIAMCINOLONE ACETONIDE. [Concomitant]
     Active Substance: TRIAMCINOLONE ACETONIDE
     Route: 045
  14. STANDARDIZED CAT HAIR [Suspect]
     Active Substance: FELIS CATUS HAIR
     Route: 058
     Dates: start: 20170313
  15. SUMATRIPTAN. [Concomitant]
     Active Substance: SUMATRIPTAN
  16. STERILE DILUENT FOR ALLERGENIC EXTRACT (ALBUMIN (HUMAN)\PHENOL) [Suspect]
     Active Substance: ALBUMIN HUMAN\PHENOL
     Route: 058
     Dates: start: 20170313

REACTIONS (3)
  - Pruritus [Recovered/Resolved]
  - Dizziness [Recovered/Resolved]
  - Vomiting [Recovered/Resolved]

NARRATIVE: CASE EVENT DATE: 20170320
